FAERS Safety Report 6691494-X (Version None)
Quarter: 2010Q2

REPORT INFORMATION
  Report Type: 
  Country: None (occurrence: None)
  Receive Date: 20100414
  Receipt Date: 20090413
  Transmission Date: 20101027
  Serious: Yes (Other)
  Sender: FDA-Public Use
  Company Number: 09-143

PATIENT
  Age: 83 Year
  Sex: Male

DRUGS (6)
  1. ALEVE [Suspect]
     Indication: PAIN
     Dosage: 1200 MG, DAILY, ORAL
     Route: 048
     Dates: start: 20090405
  2. ALEVE [Suspect]
     Indication: RHEUMATOID ARTHRITIS
     Dosage: 1200 MG, DAILY, ORAL
     Route: 048
     Dates: start: 20090405
  3. ATENOLOL [Concomitant]
  4. UNKNOWN MEDICATION [Concomitant]
  5. SYNTHROID [Concomitant]
  6. OXYCODONE AND ACETAMINOPHEN [Concomitant]

REACTIONS (1)
  - BLOOD URINE PRESENT [None]
